FAERS Safety Report 12600646 (Version 1)
Quarter: 2016Q3

REPORT INFORMATION
  Report Type: Spontaneous
  Country: US (occurrence: US)
  Receive Date: 20160727
  Receipt Date: 20160727
  Transmission Date: 20161109
  Serious: Yes (Other)
  Sender: FDA-Public Use
  Company Number: US-ALLERGAN-1663993US

PATIENT
  Age: 15 Year
  Sex: Male
  Weight: 71.6 kg

DRUGS (3)
  1. BOTOX [Suspect]
     Active Substance: ONABOTULINUMTOXINA
     Dosage: 400 UNITS, SINGLE
     Route: 030
     Dates: start: 20131023, end: 20131023
  2. BOTOX [Suspect]
     Active Substance: ONABOTULINUMTOXINA
     Indication: HEMIPLEGIA
     Dosage: 200 UNITS, SINGLE
     Route: 030
     Dates: start: 20120424, end: 20120424
  3. BOTOX [Suspect]
     Active Substance: ONABOTULINUMTOXINA
     Dosage: 400 UNITS, SINGLE
     Route: 030
     Dates: start: 20160126, end: 20160126

REACTIONS (7)
  - Depression [Unknown]
  - Suicidal ideation [Unknown]
  - Pneumonia mycoplasmal [Unknown]
  - Off label use [Unknown]
  - Upper respiratory tract infection [Unknown]
  - Somnolence [Unknown]
  - Fatigue [Unknown]
